FAERS Safety Report 9238050 (Version 2)
Quarter: 2013Q2

REPORT INFORMATION
  Report Type: Spontaneous
  Country: CA (occurrence: None)
  Receive Date: 20130329
  Receipt Date: 20130405
  Transmission Date: 20140414
  Serious: Yes (Other)
  Sender: FDA-Public Use
  Company Number: 2013035142

PATIENT
  Age: 31 Year
  Sex: Female

DRUGS (1)
  1. HIZENTRA [Suspect]
     Indication: IMMUNODEFICIENCY COMMON VARIABLE
     Dosage: 40 G 1X/MONTH, 70ML DAILY
     Dates: start: 20120910

REACTIONS (4)
  - Fatigue [None]
  - Feeling abnormal [None]
  - Headache [None]
  - Formication [None]
